FAERS Safety Report 8353941-7 (Version None)
Quarter: 2012Q2

REPORT INFORMATION
  Report Type: 
  Country: None (occurrence: None)
  Receive Date: 20120511
  Receipt Date: 20120504
  Transmission Date: 20120825
  Serious: Yes (Hospitalization)
  Sender: FDA-Public Use
  Company Number: US-ASTRAZENECA-2011SE47342

PATIENT
  Age: 67 Year
  Sex: Female

DRUGS (13)
  1. COREG [Concomitant]
  2. VITAMIN D [Concomitant]
  3. VICODIN [Concomitant]
  4. DICYCLOMINE [Concomitant]
  5. CALCIUM [Concomitant]
  6. PLAVIX [Concomitant]
  7. ZOFRAN [Concomitant]
  8. CYMBALTA [Concomitant]
  9. MEGASE [Concomitant]
  10. NEXIUM [Suspect]
     Route: 048
  11. DIAZEPAM [Concomitant]
  12. LIDOCAINE [Concomitant]
  13. VITAMIN B-12 [Concomitant]

REACTIONS (15)
  - CARDIAC FAILURE CONGESTIVE [None]
  - MENTAL IMPAIRMENT [None]
  - NEUROPATHY PERIPHERAL [None]
  - APHAGIA [None]
  - GASTRIC DISORDER [None]
  - INTESTINAL PROLAPSE [None]
  - MALAISE [None]
  - HIP FRACTURE [None]
  - RESPIRATORY DISORDER [None]
  - VOMITING [None]
  - INTENTIONAL DRUG MISUSE [None]
  - MYOCARDIAL INFARCTION [None]
  - DIZZINESS [None]
  - WEIGHT DECREASED [None]
  - HERNIA [None]
